FAERS Safety Report 5359605-6 (Version None)
Quarter: 2007Q2

REPORT INFORMATION
  Report Type: 
  Country: None (occurrence: None)
  Receive Date: 20070530
  Receipt Date: 20061127
  Transmission Date: 20071010
  Serious: Yes (Other)
  Sender: FDA-Public Use
  Company Number: US200606002242

PATIENT
  Age: 35 Year
  Sex: Female
  Weight: 95.2 kg

DRUGS (4)
  1. ZYPREXA [Suspect]
     Dosage: 15 MG,
     Dates: start: 20001201, end: 20050501
  2. CLOZAPINE [Concomitant]
  3. HALOPERIDOL [Concomitant]
  4. SERTRALINE [Concomitant]

REACTIONS (6)
  - DIABETES MELLITUS [None]
  - DIABETIC KETOACIDOSIS [None]
  - GLYCOSURIA [None]
  - HYPERTENSION [None]
  - METABOLIC DISORDER [None]
  - OBESITY [None]
